FAERS Safety Report 9841368 (Version 1)
Quarter: 2014Q1

REPORT INFORMATION
  Report Type: Spontaneous
  Country: US (occurrence: US)
  Receive Date: 20140124
  Receipt Date: 20140124
  Transmission Date: 20141002
  Serious: No
  Sender: FDA-Public Use
  Company Number: US-BAYER-2014-012326

PATIENT
  Age: 70 Year
  Sex: Female
  Weight: 54 kg

DRUGS (3)
  1. ALEVE CAPLET [Suspect]
     Indication: CHEMOTHERAPY
     Dosage: 1 DF OTHER
     Dates: start: 201310
  2. HYDROCODONE [Concomitant]
  3. CLARITIN [Concomitant]

REACTIONS (2)
  - Drug ineffective [None]
  - Off label use [None]
